FAERS Safety Report 7484265-8 (Version None)
Quarter: 2011Q2

REPORT INFORMATION
  Report Type: 
  Country: None (occurrence: None)
  Receive Date: 20110517
  Receipt Date: 20101014
  Transmission Date: 20111010
  Serious: No
  Sender: FDA-Public Use
  Company Number: US-BAYER-201039819NA

PATIENT
  Age: 28 Year
  Sex: Female
  Weight: 58 kg

DRUGS (12)
  1. VICODIN ES [Concomitant]
     Indication: PAIN
     Dosage: UNK 1 TAB, Q4HR, PRN
     Route: 048
     Dates: start: 20090417
  2. DROSPIRENONE AND ETHINYL ESTRADIOL [Suspect]
     Indication: ACNE
  3. MORPHINE SULFATE [Concomitant]
     Dosage: 4 MG, ONCE
     Route: 042
     Dates: start: 20090417
  4. NAPROXEN [Concomitant]
     Dosage: 500 MG, UNK
  5. METRONIDAZOLE [Concomitant]
     Dosage: 500 MG, UNK
  6. STOOL SOFTENER [Concomitant]
  7. YAZ [Suspect]
     Indication: ACNE
  8. YASMIN [Suspect]
     Indication: ACNE
  9. FERROUS SULFATE TAB [Concomitant]
  10. FLUTICASONE PROPIONATE [Concomitant]
  11. CLOTRIMAZOLE W/BETAMETHASONE DIPROPIONAT [Concomitant]
  12. HYDROCORTISONE [Concomitant]

REACTIONS (1)
  - INJURY [None]
